FAERS Safety Report 6757904-4 (Version None)
Quarter: 2010Q2

REPORT INFORMATION
  Report Type: 
  Country: None (occurrence: None)
  Receive Date: 20100607
  Receipt Date: 20100531
  Transmission Date: 20101027
  Serious: Yes (Death)
  Sender: FDA-Public Use
  Company Number: UA-BAYER-201025978GPV

PATIENT
  Age: 9 Year
  Sex: Male
  Weight: 30 kg

DRUGS (45)
  1. AVELOX [Suspect]
     Indication: DRUG USE FOR UNKNOWN INDICATION
     Dosage: TOTAL DAILY DOSE: 400 MG  UNIT DOSE: 400 MG
     Route: 042
     Dates: start: 20070408, end: 20070408
  2. CEFTRIAXONE [Concomitant]
  3. IMMUNE GLOBULIN NOS [Concomitant]
  4. MERONEM [Concomitant]
     Dates: start: 20070403
  5. AMBROXOL [Concomitant]
     Dosage: 3 AMPOULES
     Dates: start: 20070403
  6. RINGER'S SOLUTION [Concomitant]
     Dosage: 4 VIALS
     Dates: start: 20070403
  7. SODIUM CHLORIDE [Concomitant]
     Dosage: UNIT DOSE: 0.9 %
     Dates: start: 20070403
  8. FUCORCIN [Concomitant]
  9. FLUCONAZOLE [Concomitant]
     Dates: start: 20070403
  10. FLUCONAZOLE [Concomitant]
     Dates: start: 20070405
  11. FLUCONAZOLE [Concomitant]
     Dates: start: 20070407
  12. LASOLVAN [Concomitant]
     Dosage: 1 VIAL OF SYRUP FOR CHILDREN
     Dates: start: 20070404
  13. MAXIPIME [Concomitant]
     Dates: start: 20070405
  14. MAXIPIME [Concomitant]
     Dates: start: 20070408
  15. MAXIPIME [Concomitant]
     Dates: start: 20070404
  16. MAXIPIME [Concomitant]
     Dates: start: 20070407
  17. EDICIN 330 NO 3 [Concomitant]
     Dosage: 1 VIAL
     Dates: start: 20070404
  18. FAMOTIDINE [Concomitant]
     Dates: start: 20070405
  19. ENOXAPARIN SODIUM [Concomitant]
     Dates: start: 20070408
  20. ENOXAPARIN SODIUM [Concomitant]
     Dates: start: 20070407
  21. ENOXAPARIN SODIUM [Concomitant]
     Dates: start: 20070405
  22. VEROSPIRON [Concomitant]
     Dates: start: 20070407
  23. VEROSPIRON [Concomitant]
     Dates: start: 20070405
  24. MILDRONATE [Concomitant]
     Dosage: 1 AMPOLUE
     Dates: start: 20070408
  25. MILDRONATE [Concomitant]
     Dates: start: 20070406
  26. MILDRONATE [Concomitant]
     Dosage: UNIT DOSE: 250 MG
     Dates: start: 20070405
  27. VEROLAX [Concomitant]
     Dosage: UNIT DOSE: 250 MG
     Dates: start: 20070408
  28. VEROLAX [Concomitant]
     Dosage: UNIT DOSE: 250 MG
     Dates: start: 20070406
  29. VEROLAX [Concomitant]
     Dosage: UNIT DOSE: 250 MG
     Dates: start: 20070407
  30. CLEMASTINE FUMARATE [Concomitant]
     Dosage: 1 AMPOULES
     Dates: start: 20070408
  31. CLEMASTINE FUMARATE [Concomitant]
     Dates: start: 20070407
  32. CLEMASTINE FUMARATE [Concomitant]
     Dosage: 2 AMPOULES
     Dates: start: 20070406
  33. ENTEROSORBENT [Concomitant]
  34. TARGOCIDE [Concomitant]
     Dosage: UNIT DOSE: 200 MG
     Dates: start: 20070407
  35. TARGOCIDE [Concomitant]
     Dosage: UNIT DOSE: 200 MG
     Dates: start: 20070406
  36. RANTAC [Concomitant]
     Dosage: 2 AMPOULES
     Dates: start: 20070407
  37. MEDOX [Concomitant]
     Dosage: 1 VIAL
  38. NISE [Concomitant]
     Dates: start: 20070407
  39. DIALICAM [Concomitant]
  40. DICLOFENAC [Concomitant]
     Dosage: 1 AMPOULE
     Dates: start: 20070408
  41. DIGOXIN [Concomitant]
     Dosage: 1 AMPOULE
     Dates: start: 20070408
  42. RANITIDINE [Concomitant]
     Dates: start: 20070408
  43. RECORMON [Concomitant]
     Dosage: 1 UNIT DOSE SYRINGE
     Dates: start: 20070408
  44. DIALIPONUM [Concomitant]
     Dosage: UNIT DOSE: 600 MG
     Dates: start: 20070408
  45. NYSTATIN [Concomitant]
     Dates: start: 20070408

REACTIONS (1)
  - DEATH [None]
